FAERS Safety Report 7859165-1 (Version None)
Quarter: 2011Q4

REPORT INFORMATION
  Report Type: 
  Country: None (occurrence: None)
  Receive Date: 20111027
  Receipt Date: 20111014
  Transmission Date: 20120403
  Serious: Yes (Death, Hospitalization)
  Sender: FDA-Public Use
  Company Number: JP-EISAI INC-E7389-01543-SPO-JP

PATIENT
  Age: 55 Year
  Sex: Female

DRUGS (3)
  1. SEROTONE [Concomitant]
     Route: 042
     Dates: start: 20110803, end: 20110812
  2. DECADRON [Concomitant]
     Indication: PROPHYLAXIS
     Route: 042
     Dates: start: 20110803, end: 20110812
  3. HALAVEN [Suspect]
     Indication: BREAST CANCER RECURRENT
     Route: 042
     Dates: start: 20110803, end: 20110812

REACTIONS (4)
  - DYSPNOEA [None]
  - RESPIRATORY FAILURE [None]
  - MALAISE [None]
  - DECREASED APPETITE [None]
